FAERS Safety Report 16892682 (Version 4)
Quarter: 2019Q4

REPORT INFORMATION
  Report Type: Spontaneous
  Country: JP (occurrence: JP)
  Receive Date: 20191007
  Receipt Date: 20191227
  Transmission Date: 20200122
  Serious: Yes (Hospitalization, Other)
  Sender: FDA-Public Use
  Company Number: JP-PFIZER INC-2019429334

PATIENT
  Age: 58 Year
  Sex: Male
  Weight: 75 kg

DRUGS (5)
  1. XELJANZ [Suspect]
     Active Substance: TOFACITINIB CITRATE
     Indication: COLITIS ULCERATIVE
     Dosage: 10 MG, 2X/DAY
     Route: 048
     Dates: start: 20190927
  2. PREDONINE [Concomitant]
     Active Substance: PREDNISOLONE
     Indication: MELAENA
     Dosage: 10 MG, 2X/DAY
     Route: 048
     Dates: start: 20190910, end: 20190930
  3. CEFMETAZON [Concomitant]
     Active Substance: CEFMETAZOLE SODIUM
     Indication: MELAENA
     Dosage: 1 G, 2X/DAY
     Route: 041
     Dates: start: 20190930, end: 20191003
  4. PREDONINE [Concomitant]
     Active Substance: PREDNISOLONE
     Indication: COLITIS ULCERATIVE
     Dosage: UNK
     Dates: start: 20191018
  5. CEFMETAZON [Concomitant]
     Active Substance: CEFMETAZOLE SODIUM
     Indication: COLITIS ULCERATIVE

REACTIONS (23)
  - Melaena [Recovered/Resolved]
  - Blood creatine phosphokinase decreased [Recovered/Resolved]
  - Mean cell haemoglobin decreased [Unknown]
  - Protein total decreased [Unknown]
  - C-reactive protein increased [Recovered/Resolved]
  - Blood calcium decreased [Recovered/Resolved]
  - Gamma-glutamyltransferase increased [Unknown]
  - Haematocrit decreased [Unknown]
  - Haemoglobin decreased [Unknown]
  - Alanine aminotransferase increased [Unknown]
  - Glomerular filtration rate decreased [Unknown]
  - Lymphocyte percentage decreased [Unknown]
  - Red blood cell count decreased [Unknown]
  - Body temperature increased [Recovered/Resolved]
  - Platelet count increased [Unknown]
  - White blood cell count increased [Unknown]
  - Blood glucose increased [Recovered/Resolved]
  - Aspartate aminotransferase increased [Unknown]
  - Blood chloride decreased [Unknown]
  - Condition aggravated [Recovered/Resolved]
  - Blood albumin decreased [Unknown]
  - Blood lactate dehydrogenase increased [Unknown]
  - Blood urea decreased [Recovered/Resolved]

NARRATIVE: CASE EVENT DATE: 20191001
